FAERS Safety Report 8470347-0 (Version None)
Quarter: 2012Q2

REPORT INFORMATION
  Report Type: 
  Country: None (occurrence: None)
  Receive Date: 20120627
  Receipt Date: 20120620
  Transmission Date: 20120825
  Serious: No
  Sender: FDA-Public Use
  Company Number: US-PFIZER INC-2012144822

PATIENT
  Sex: Female

DRUGS (5)
  1. SUTENT [Suspect]
     Indication: PANCREATIC NEUROENDOCRINE TUMOUR
     Dosage: 37.5 MG (25MG + 12.5MG), 1X/DAY
     Dates: start: 20120427
  2. FISH OIL [Concomitant]
  3. ATENOLOL [Concomitant]
     Indication: BLOOD PRESSURE ABNORMAL
     Dosage: 50 MG, 1X/DAY IN THE EVENING
  4. AMLODIPINE [Concomitant]
     Indication: BLOOD PRESSURE ABNORMAL
     Dosage: 5 MG, 1X/DAY IN THE EVENING
  5. HYDROCHLOROTHIAZIDE [Concomitant]
     Indication: BLOOD PRESSURE ABNORMAL
     Dosage: 25 MG, 1X/DAY IN THE EVENING

REACTIONS (9)
  - THERAPEUTIC RESPONSE UNEXPECTED [None]
  - GLOSSODYNIA [None]
  - DYSGEUSIA [None]
  - TONGUE DISCOLOURATION [None]
  - EPISTAXIS [None]
  - SKIN DISCOLOURATION [None]
  - HYPERSENSITIVITY [None]
  - BLISTER [None]
  - SKIN PAPILLOMA [None]
